FAERS Safety Report 17780539 (Version 1)
Quarter: 2020Q2

REPORT INFORMATION
  Report Type: Spontaneous
  Country: US (occurrence: US)
  Receive Date: 20200513
  Receipt Date: 20200513
  Transmission Date: 20200714
  Serious: Yes (Other)
  Sender: FDA-Public Use
  Company Number: US-PFIZER INC-2020189119

PATIENT
  Age: 61 Year
  Sex: Female
  Weight: 53.52 kg

DRUGS (1)
  1. TOVIAZ [Suspect]
     Active Substance: FESOTERODINE FUMARATE
     Indication: BLADDER DISORDER
     Dosage: 8 MG, DAILY
     Route: 048

REACTIONS (9)
  - Loss of consciousness [Unknown]
  - Spinal stenosis [Recovering/Resolving]
  - Blindness transient [Unknown]
  - Vision blurred [Unknown]
  - Drug ineffective [Unknown]
  - Impaired driving ability [Recovered/Resolved]
  - Post-traumatic stress disorder [Not Recovered/Not Resolved]
  - Depression [Not Recovered/Not Resolved]
  - Tremor [Unknown]

NARRATIVE: CASE EVENT DATE: 2017
